FAERS Safety Report 8845355 (Version 1)
Quarter: 2012Q4

REPORT INFORMATION
  Report Type: 
  Country: IT (occurrence: IT)
  Receive Date: 20121017
  Receipt Date: 20121017
  Transmission Date: 20130627
  Serious: Yes (Congenital Anomaly)
  Sender: FDA-Public Use
  Company Number: IT-MYLANLABS-2012S1020889

PATIENT

DRUGS (3)
  1. LORAZEPAM [Suspect]
     Route: 064
     Dates: start: 20120201, end: 20120228
  2. TRILAFON [Suspect]
     Route: 064
     Dates: start: 20111011, end: 20121002
  3. ANAFRANIL [Suspect]
     Route: 064
     Dates: start: 20081021, end: 20121002

REACTIONS (3)
  - Cleft palate [Unknown]
  - Exposure during pregnancy [Unknown]
  - Maternal drugs affecting foetus [None]
